FAERS Safety Report 23207380 (Version 1)
Quarter: 2023Q4

REPORT INFORMATION
  Report Type: Spontaneous
  Country: US (occurrence: US)
  Receive Date: 20231120
  Receipt Date: 20231120
  Transmission Date: 20240109
  Serious: Yes (Death, Life-Threatening, Other)
  Sender: FDA-Public Use
  Company Number: US-BRACCO-2023US03097

PATIENT
  Age: 62 Year
  Sex: Male

DRUGS (17)
  1. LUMASON [Suspect]
     Active Substance: SULFUR HEXAFLUORIDE
     Indication: Echocardiogram
     Dosage: 2.5 ML, SINGLE TOTAL DOSE
     Route: 042
     Dates: start: 20230620, end: 20230620
  2. LUMASON [Suspect]
     Active Substance: SULFUR HEXAFLUORIDE
     Indication: Echocardiogram
     Dosage: 2.5 ML, SINGLE TOTAL DOSE
     Route: 042
     Dates: start: 20230620, end: 20230620
  3. LUMASON [Suspect]
     Active Substance: SULFUR HEXAFLUORIDE
     Indication: Echocardiogram
     Dosage: 2.5 ML, SINGLE TOTAL DOSE
     Route: 042
     Dates: start: 20230620, end: 20230620
  4. ISOVUE [Concomitant]
     Active Substance: IOPAMIDOL
     Indication: Coronary arterial stent insertion
     Dosage: UNK
     Dates: start: 20230620, end: 20230620
  5. ASPIRIN [Concomitant]
     Active Substance: ASPIRIN
  6. ATORVASTATIN [Concomitant]
     Active Substance: ATORVASTATIN
  7. CARVEDILOL [Concomitant]
     Active Substance: CARVEDILOL
  8. INSULIN ASPART [Concomitant]
     Active Substance: INSULIN ASPART
  9. INSULIN DETEMIR [Concomitant]
     Active Substance: INSULIN DETEMIR
  10. LISINOPRIL [Concomitant]
     Active Substance: LISINOPRIL
  11. SODIUM CHLORIDE [Concomitant]
     Active Substance: SODIUM CHLORIDE
  12. TICAGRELOR [Concomitant]
     Active Substance: TICAGRELOR
  13. MAGNESIUM [Concomitant]
     Active Substance: MAGNESIUM
  14. POTASSIUM [Concomitant]
     Active Substance: POTASSIUM
  15. DEXTROSE [Concomitant]
     Active Substance: DEXTROSE\DEXTROSE MONOHYDRATE
  16. MORPHINE [Concomitant]
     Active Substance: MORPHINE
  17. ONDANSETRON [Concomitant]
     Active Substance: ONDANSETRON

REACTIONS (3)
  - Cardio-respiratory arrest [Fatal]
  - Nausea [Unknown]
  - Vomiting [Unknown]

NARRATIVE: CASE EVENT DATE: 20230620
